FAERS Safety Report 9419885 (Version 1)
Quarter: 2013Q3

REPORT INFORMATION
  Report Type: Spontaneous
  Country: JP (occurrence: JP)
  Receive Date: 20130725
  Receipt Date: 20130725
  Transmission Date: 20140515
  Serious: Yes (Disabling)
  Sender: FDA-Public Use
  Company Number: JP-COVIDIEN/TYCO HEALTHCARE/MALLINCKRODT-T201303794

PATIENT
  Age: 57 Year
  Sex: Male
  Weight: 67 kg

DRUGS (9)
  1. METHADONE [Suspect]
     Indication: CANCER PAIN
     Dosage: 15 MG, ONE TIME DOSE 5MG
     Route: 048
     Dates: start: 20130402, end: 20130416
  2. OXINORM                            /00045603/ [Concomitant]
     Dosage: 15 MG, PRN
     Route: 048
     Dates: start: 20130402
  3. MAGMITT [Concomitant]
     Dosage: 1980 MG, UNK
     Route: 048
     Dates: end: 20130416
  4. HANGESHASHINTO [Concomitant]
     Dosage: 7500 MG, UNK
     Route: 048
     Dates: end: 20130416
  5. LAC-B [Concomitant]
     Dosage: 3000 MG, UNK
     Route: 048
     Dates: end: 20130416
  6. MOBIC [Concomitant]
     Dosage: 10 MG, UNK
     Route: 048
     Dates: end: 20130416
  7. TAKEPRON [Concomitant]
     Dosage: 15 MG, UNK
     Route: 048
     Dates: end: 20130416
  8. LYRICA [Concomitant]
     Dosage: 150 MG, UNK
     Route: 048
     Dates: end: 20130416
  9. CYMBALTA [Concomitant]
     Dosage: 20 MG, UNK
     Route: 048
     Dates: end: 20130416

REACTIONS (2)
  - Intestinal obstruction [Not Recovered/Not Resolved]
  - Hepatic function abnormal [Recovered/Resolved]
